FAERS Safety Report 10068932 (Version 1)
Quarter: 2014Q2

REPORT INFORMATION
  Report Type: Spontaneous
  Country: US (occurrence: US)
  Receive Date: 20140409
  Receipt Date: 20140409
  Transmission Date: 20141212
  Serious: Yes (Other)
  Sender: FDA-Public Use
  Company Number: US-B.I. PHARMACEUTICALS,INC./RIDGEFIELD-2014-BI-14816BP

PATIENT
  Age: 82 Year
  Sex: Female

DRUGS (11)
  1. DULCOLAX TABLETS [Suspect]
     Indication: CONSTIPATION
     Dosage: 15 MG
     Route: 048
     Dates: start: 20140401
  2. HYDROCHLORTHIAZIDE [Concomitant]
     Indication: POLYURIA
     Dosage: 12.5 MG
     Route: 048
  3. METOPROLOL [Concomitant]
     Indication: HYPERTENSION
     Dosage: 50 MG
     Route: 048
  4. RESTARIL [Concomitant]
     Indication: SLEEP DISORDER THERAPY
     Dosage: 30 MG
     Route: 048
  5. ZYPREXA [Concomitant]
     Indication: DEPRESSION
     Dosage: 5 MG
     Route: 048
  6. ZYPREXA [Concomitant]
     Indication: ANXIETY
  7. CELEXA [Concomitant]
     Indication: DEPRESSION
     Dosage: 20 MG
     Route: 050
  8. CELEXA [Concomitant]
     Indication: ANXIETY
  9. SEROQUEL [Concomitant]
     Indication: DEPRESSION
     Dosage: 100 MG
     Route: 048
  10. SEROQUEL [Concomitant]
     Indication: ANXIETY
  11. SYNTHROID [Concomitant]
     Indication: HYPOTHYROIDISM
     Route: 048

REACTIONS (5)
  - Abnormal loss of weight [Unknown]
  - Diarrhoea [Not Recovered/Not Resolved]
  - Haematochezia [Not Recovered/Not Resolved]
  - Vomiting [Recovered/Resolved]
  - Haemorrhoidal haemorrhage [Unknown]
